FAERS Safety Report 6999603-X (Version None)
Quarter: 2010Q3

REPORT INFORMATION
  Report Type: 
  Country: None (occurrence: None)
  Receive Date: 20100920
  Receipt Date: 20100329
  Transmission Date: 20110219
  Serious: Yes (Hospitalization)
  Sender: FDA-Public Use
  Company Number: US-ASTRAZENECA-2010SE13827

PATIENT
  Age: 17 Year
  Sex: Male

DRUGS (5)
  1. SEROQUEL [Suspect]
     Indication: PSYCHOTIC DISORDER
     Route: 048
     Dates: start: 20100317
  2. SEROQUEL [Suspect]
     Route: 048
     Dates: start: 20100318
  3. SEROQUEL [Suspect]
     Route: 048
     Dates: start: 20100319
  4. SEROQUEL [Suspect]
     Route: 048
     Dates: start: 20100320
  5. SEROQUEL [Suspect]
     Route: 048
     Dates: start: 20100322, end: 20100327

REACTIONS (3)
  - ASTHENIA [None]
  - SYNCOPE [None]
  - TACHYCARDIA [None]
